FAERS Safety Report 5511478-4 (Version None)
Quarter: 2007Q4

REPORT INFORMATION
  Report Type: 
  Country: None (occurrence: None)
  Receive Date: 20071109
  Receipt Date: 20071026
  Transmission Date: 20080405
  Serious: Yes (Hospitalization)
  Sender: FDA-Public Use
  Company Number: TR-ELI_LILLY_AND_COMPANY-TR200710007487

PATIENT
  Sex: Male
  Weight: 83 kg

DRUGS (3)
  1. HUMULIN N [Suspect]
     Indication: DIABETES MELLITUS
     Dosage: 22 IU, UNKNOWN
     Route: 058
     Dates: start: 19990101
  2. HUMULIN N [Suspect]
     Dosage: 20 IU, UNKNOWN
     Route: 058
     Dates: start: 19990101
  3. AMARYL [Concomitant]
     Indication: DIABETES MELLITUS
     Dosage: 2 MG, DAILY (1/D)
     Route: 048

REACTIONS (1)
  - BLOOD GLUCOSE ABNORMAL [None]
